FAERS Safety Report 4918709-X (Version None)
Quarter: 2006Q1

REPORT INFORMATION
  Report Type: 
  Country: None (occurrence: None)
  Receive Date: 20060216
  Receipt Date: 20060203
  Transmission Date: 20060701
  Serious: Yes (Death, Hospitalization)
  Sender: FDA-Public Use
  Company Number: CERZ-11129

PATIENT
  Age: 76 Year

DRUGS (1)
  1. CEREZYME [Suspect]
     Indication: GAUCHER'S DISEASE
     Dosage: 2000 UNITS Q2WKS IV
     Route: 042

REACTIONS (2)
  - ANGINA UNSTABLE [None]
  - CARDIOPULMONARY FAILURE [None]
